FAERS Safety Report 12552958 (Version 1)
Quarter: 2016Q3

REPORT INFORMATION
  Report Type: Spontaneous
  Country: US (occurrence: US)
  Receive Date: 20160713
  Receipt Date: 20160713
  Transmission Date: 20161109
  Serious: No
  Sender: FDA-Public Use
  Company Number: US-EISAI MEDICAL RESEARCH-EC-2016-018371

PATIENT
  Age: 30 Year
  Sex: Female

DRUGS (14)
  1. ONFI [Suspect]
     Active Substance: CLOBAZAM
     Route: 048
     Dates: start: 201601, end: 201601
  2. ADDERALL XR [Concomitant]
     Active Substance: AMPHETAMINE ASPARTATE\AMPHETAMINE SULFATE\DEXTROAMPHETAMINE SACCHARATE\DEXTROAMPHETAMINE SULFATE
     Indication: PRODUCT USED FOR UNKNOWN INDICATION
     Route: 048
  3. BANZEL [Suspect]
     Active Substance: RUFINAMIDE
     Indication: PRODUCT USED FOR UNKNOWN INDICATION
     Dosage: UNKNOWN
     Route: 048
     Dates: end: 201601
  4. LAMICTAL [Concomitant]
     Active Substance: LAMOTRIGINE
     Indication: PRODUCT USED FOR UNKNOWN INDICATION
     Route: 065
  5. ZONEGRAN [Concomitant]
     Active Substance: ZONISAMIDE
     Indication: EPILEPSY
     Route: 065
  6. VITAMIN D3 [Concomitant]
     Active Substance: CHOLECALCIFEROL
     Indication: PRODUCT USED FOR UNKNOWN INDICATION
     Route: 048
  7. DIAZEPAM. [Concomitant]
     Active Substance: DIAZEPAM
     Indication: PARTIAL SEIZURES
     Route: 060
  8. BANZEL [Suspect]
     Active Substance: RUFINAMIDE
     Dosage: UNKNOWN
     Route: 048
     Dates: start: 2016
  9. ONFI [Suspect]
     Active Substance: CLOBAZAM
     Route: 048
     Dates: start: 201601, end: 201601
  10. ONFI [Suspect]
     Active Substance: CLOBAZAM
     Route: 048
     Dates: start: 2016, end: 2016
  11. BANZEL [Suspect]
     Active Substance: RUFINAMIDE
     Dosage: DOWN-TITRATION
     Route: 048
     Dates: start: 201601, end: 2016
  12. ONFI [Suspect]
     Active Substance: CLOBAZAM
     Indication: PRODUCT USED FOR UNKNOWN INDICATION
     Route: 048
     Dates: start: 20151229, end: 201601
  13. ONFI [Suspect]
     Active Substance: CLOBAZAM
     Route: 048
     Dates: start: 201601, end: 201601
  14. ONFI [Suspect]
     Active Substance: CLOBAZAM
     Route: 048
     Dates: start: 2016, end: 2016

REACTIONS (5)
  - Seizure [Recovering/Resolving]
  - Somnolence [Recovered/Resolved]
  - Headache [Recovered/Resolved]
  - Malaise [Recovered/Resolved]
  - Fatigue [Recovered/Resolved]

NARRATIVE: CASE EVENT DATE: 201602
